FAERS Safety Report 4491866-8 (Version None)
Quarter: 2004Q4

REPORT INFORMATION
  Report Type: 
  Country: None (occurrence: None)
  Receive Date: 20041028
  Receipt Date: 20041028
  Transmission Date: 20050328
  Serious: Yes (Death)
  Sender: FDA-Public Use
  Company Number: None

PATIENT
  Age: 25 Year
  Sex: Female
  Weight: 63.5036 kg

DRUGS (5)
  1. FERRLECIT [Suspect]
     Dosage: 25MG (TEST DOSE) IV
     Route: 042
     Dates: start: 20041011
  2. FERRLECIT [Suspect]
  3. LEVAQUIN [Concomitant]
  4. DILAUDID [Concomitant]
  5. FLAGYL [Concomitant]

REACTIONS (3)
  - ATRIAL FIBRILLATION [None]
  - CARDIAC ARREST [None]
  - DISCOMFORT [None]
